FAERS Safety Report 24644135 (Version 3)
Quarter: 2024Q4

REPORT INFORMATION
  Report Type: Spontaneous
  Country: US (occurrence: US)
  Receive Date: 20241120
  Receipt Date: 20241223
  Transmission Date: 20250114
  Serious: Yes (Other)
  Sender: BAUSCH AND LOMB
  Company Number: US-BAUSCHBL-2024BNL037417

PATIENT
  Age: 60 Year
  Sex: Male
  Weight: 79 kg

DRUGS (1)
  1. GLYCERIN\PROPYLENE GLYCOL [Suspect]
     Active Substance: GLYCERIN\PROPYLENE GLYCOL
     Indication: Product used for unknown indication
     Dosage: TOOK ONLY ONCE
     Route: 065
     Dates: start: 20241106, end: 20241106

REACTIONS (6)
  - Chemical burns of eye [Unknown]
  - Ocular hyperaemia [Unknown]
  - Eye swelling [Unknown]
  - Purulent discharge [Unknown]
  - Lacrimation increased [Unknown]
  - Expired product administered [Unknown]

NARRATIVE: CASE EVENT DATE: 20241106
